FAERS Safety Report 10262051 (Version 1)
Quarter: 2014Q2

REPORT INFORMATION
  Report Type: Spontaneous
  Country: US (occurrence: US)
  Receive Date: 20140626
  Receipt Date: 20140626
  Transmission Date: 20141212
  Serious: No
  Sender: FDA-Public Use
  Company Number: US-BAYER-2014-095899

PATIENT
  Age: 71 Year
  Sex: Female

DRUGS (1)
  1. FINACEA [Suspect]
     Indication: RASH
     Dosage: UNK

REACTIONS (2)
  - Application site pain [Recovering/Resolving]
  - Off label use [None]
